FAERS Safety Report 25527322 (Version 1)
Quarter: 2025Q3

REPORT INFORMATION
  Report Type: Spontaneous
  Country: CA (occurrence: CA)
  Receive Date: 20250708
  Receipt Date: 20250708
  Transmission Date: 20251020
  Serious: Yes (Other)
  Sender: ROCHE
  Company Number: CA-ROCHE-10000330029

PATIENT
  Age: 79 Year
  Sex: Female
  Weight: 35 kg

DRUGS (14)
  1. RITUXIMAB [Suspect]
     Active Substance: RITUXIMAB
     Indication: Granulomatosis with polyangiitis
     Route: 042
  2. RITUXIMAB [Suspect]
     Active Substance: RITUXIMAB
     Route: 042
  3. ACETAMINOPHEN [Concomitant]
     Active Substance: ACETAMINOPHEN
  4. ALENDRONATE SODIUM [Concomitant]
     Active Substance: ALENDRONATE SODIUM
  5. PREDNISONE [Concomitant]
     Active Substance: PREDNISONE
  6. CITALOPRAM [Concomitant]
     Active Substance: CITALOPRAM
  7. DIPHENHYDRAMINE [Concomitant]
     Active Substance: DIPHENHYDRAMINE
  8. LEVOTHYROXINE SODIUM [Concomitant]
     Active Substance: LEVOTHYROXINE SODIUM
  9. METHOTREXATE [Concomitant]
     Active Substance: METHOTREXATE
  10. METHYLPREDNISOLONE ACETATE [Concomitant]
     Active Substance: METHYLPREDNISOLONE ACETATE
  11. OXAZEPAM [Concomitant]
     Active Substance: OXAZEPAM
  12. PANTOPRAZOLE SODIUM [Concomitant]
     Active Substance: PANTOPRAZOLE SODIUM
  13. VITAMIN B12 [Concomitant]
     Active Substance: CYANOCOBALAMIN
  14. VITAMIN D3 [Concomitant]
     Active Substance: CHOLECALCIFEROL

REACTIONS (7)
  - Dyspnoea [Not Recovered/Not Resolved]
  - Ear pruritus [Not Recovered/Not Resolved]
  - Erythema [Not Recovered/Not Resolved]
  - Hypertension [Not Recovered/Not Resolved]
  - Hypotension [Not Recovered/Not Resolved]
  - Throat irritation [Not Recovered/Not Resolved]
  - Weight increased [Not Recovered/Not Resolved]
